FAERS Safety Report 7210551-2 (Version None)
Quarter: 2011Q1

REPORT INFORMATION
  Report Type: 
  Country: None (occurrence: None)
  Receive Date: 20110105
  Receipt Date: 20101209
  Transmission Date: 20110831
  Serious: Yes (Hospitalization, Other)
  Sender: FDA-Public Use
  Company Number: US-ROCHE-751194

PATIENT
  Sex: Male
  Weight: 95.3 kg

DRUGS (2)
  1. XELODA [Suspect]
     Indication: COLON CANCER
     Dosage: FREQUENCY: TWO WEEKS ON/ ONE WEEK OFF
     Route: 048
     Dates: start: 20101122, end: 20101206
  2. PLAVIX [Concomitant]
     Indication: THROMBOSIS PROPHYLAXIS

REACTIONS (7)
  - BLOOD PRESSURE DECREASED [None]
  - CLOSTRIDIAL INFECTION [None]
  - COLITIS [None]
  - GASTROINTESTINAL ULCER [None]
  - FLUID RETENTION [None]
  - DEHYDRATION [None]
  - PALMAR-PLANTAR ERYTHRODYSAESTHESIA SYNDROME [None]
